FAERS Safety Report 6404513-2 (Version None)
Quarter: 2009Q4

REPORT INFORMATION
  Report Type: 
  Country: None (occurrence: None)
  Receive Date: 20091016
  Receipt Date: 20091006
  Transmission Date: 20100525
  Serious: Yes (Hospitalization)
  Sender: FDA-Public Use
  Company Number: JP-ABBOTT-09P-087-0601167-00

PATIENT
  Sex: Female
  Weight: 60 kg

DRUGS (15)
  1. ZEMPLAR [Suspect]
     Indication: RENAL FAILURE CHRONIC
     Route: 042
     Dates: start: 20081216, end: 20081227
  2. ZEMPLAR [Suspect]
     Route: 042
     Dates: start: 20081230, end: 20090207
  3. ZEMPLAR [Suspect]
     Route: 042
     Dates: start: 20090210, end: 20090221
  4. ZEMPLAR [Suspect]
     Route: 042
     Dates: start: 20090224, end: 20090307
  5. ZEMPLAR [Suspect]
     Route: 042
     Dates: start: 20090310, end: 20090321
  6. ZEMPLAR [Suspect]
     Route: 042
     Dates: start: 20090324, end: 20090404
  7. ZEMPLAR [Suspect]
     Route: 042
     Dates: start: 20090407, end: 20090411
  8. ZEMPLAR [Suspect]
     Route: 042
     Dates: start: 20090414, end: 20090502
  9. ZEMPLAR [Suspect]
     Route: 042
     Dates: start: 20090505, end: 20090516
  10. ZEMPLAR [Suspect]
     Route: 042
     Dates: start: 20090519, end: 20090530
  11. ZEMPLAR [Suspect]
     Route: 042
     Dates: start: 20090602, end: 20090627
  12. ZEMPLAR [Suspect]
     Route: 042
     Dates: start: 20090630, end: 20090711
  13. ZEMPLAR [Suspect]
     Route: 042
     Dates: start: 20090714, end: 20090725
  14. ZEMPLAR [Suspect]
     Route: 042
     Dates: start: 20090728, end: 20090822
  15. ZEMPLAR [Suspect]
     Route: 042
     Dates: start: 20090825, end: 20090912

REACTIONS (1)
  - ARTERIOSCLEROSIS OBLITERANS [None]
